FAERS Safety Report 5701359-5 (Version None)
Quarter: 2008Q2

REPORT INFORMATION
  Report Type: 
  Country: None (occurrence: None)
  Receive Date: 20080409
  Receipt Date: 20080327
  Transmission Date: 20081010
  Serious: Yes (Hospitalization)
  Sender: FDA-Public Use
  Company Number: 2007BI024850

PATIENT
  Age: 60 Year
  Sex: Female

DRUGS (1)
  1. AVONEX [Suspect]
     Indication: MULTIPLE SCLEROSIS
     Dosage: 30 UG; QW; IM
     Route: 030
     Dates: start: 20010415

REACTIONS (7)
  - ARTHROPATHY [None]
  - ASPIRATION JOINT ABNORMAL [None]
  - CELLULITIS [None]
  - CLOSTRIDIAL INFECTION [None]
  - DEVICE RELATED INFECTION [None]
  - FUNGAL INFECTION [None]
  - STREPTOCOCCAL INFECTION [None]
